FAERS Safety Report 20899761 (Version 1)
Quarter: 2022Q2

REPORT INFORMATION
  Report Type: Spontaneous
  Country: US (occurrence: US)
  Receive Date: 20220601
  Receipt Date: 20220601
  Transmission Date: 20220721
  Serious: No
  Sender: FDA-Public Use
  Company Number: US-AUROBINDO-AUR-APL-2021-027109

PATIENT
  Age: 56 Year
  Sex: Male
  Weight: 93.4 kg

DRUGS (2)
  1. ONDANSETRON [Suspect]
     Active Substance: ONDANSETRON
     Indication: Nausea
     Dosage: 1 DOSAGE FORM, ONCE A DAY, ONCE IN THE MORNING DISSOLVE IN MOUTH
     Route: 048
     Dates: end: 20210614
  2. METHADONE [Concomitant]
     Active Substance: METHADONE HYDROCHLORIDE
     Indication: Product used for unknown indication
     Dosage: UNK
     Route: 065

REACTIONS (2)
  - Therapeutic agent urine positive [Not Recovered/Not Resolved]
  - Drug screen positive [Not Recovered/Not Resolved]
